FAERS Safety Report 16853635 (Version 1)
Quarter: 2019Q4

REPORT INFORMATION
  Report Type: Spontaneous
  Country: US (occurrence: US)
  Receive Date: 20190925
  Receipt Date: 20190925
  Transmission Date: 20200122
  Serious: No
  Sender: FDA-Public Use
  Company Number: None

PATIENT
  Sex: Female

DRUGS (1)
  1. AMITRIPTYLINE 25 MG [Suspect]
     Active Substance: AMITRIPTYLINE

REACTIONS (1)
  - Weight increased [None]
